FAERS Safety Report 10986993 (Version 1)
Quarter: 2015Q1

REPORT INFORMATION
  Report Type: Spontaneous
  Country: US (occurrence: None)
  Receive Date: 20150304
  Receipt Date: 20150304
  Transmission Date: 20150721
  Serious: Yes (Other)
  Sender: FDA-Public Use
  Company Number: 2484149

PATIENT
  Age: 42 Year
  Sex: Male
  Weight: 67.5 kg

DRUGS (18)
  1. AMIODARONE [Concomitant]
     Active Substance: AMIODARONE
  2. NICARDIPINE [Concomitant]
     Active Substance: NICARDIPINE
  3. SPIRONOLACTONE. [Concomitant]
     Active Substance: SPIRONOLACTONE
  4. THIAMINE [Concomitant]
     Active Substance: THIAMINE
  5. VANCOMYCIN [Concomitant]
     Active Substance: VANCOMYCIN
  6. FOLIC ACID. [Concomitant]
     Active Substance: FOLIC ACID
  7. ASPIRIN. [Concomitant]
     Active Substance: ASPIRIN
  8. SODIUM CHLORIDE. [Concomitant]
     Active Substance: SODIUM CHLORIDE
  9. HEPARIN SODIUM  INJECTION (HEPARIN SODIUM) [Suspect]
     Active Substance: HEPARIN SODIUM
     Indication: PROPHYLAXIS
     Route: 041
     Dates: start: 20140803, end: 20140803
  10. ACETAMINOPHEN. [Concomitant]
     Active Substance: ACETAMINOPHEN
  11. DEXTROSE. [Concomitant]
     Active Substance: DEXTROSE
  12. CHLORHEXIDINE [Concomitant]
     Active Substance: CHLORHEXIDINE
  13. INSULIN, REGULAR [Concomitant]
     Active Substance: INSULIN NOS
  14. NYSTATIN. [Concomitant]
     Active Substance: NYSTATIN
  15. PIPERACILLIN/TAZOBACTAM [Concomitant]
     Active Substance: PIPERACILLIN SODIUM\TAZOBACTAM SODIUM
  16. LANSOPRAZOLE. [Concomitant]
     Active Substance: LANSOPRAZOLE
  17. HEPARIN SODIUM  INJECTION (HEPARIN SODIUM) [Suspect]
     Active Substance: HEPARIN SODIUM
     Indication: ANTICOAGULANT THERAPY
     Route: 041
     Dates: start: 20140803, end: 20140803
  18. KCL [Concomitant]
     Active Substance: POTASSIUM CHLORIDE

REACTIONS (4)
  - Activated partial thromboplastin time prolonged [None]
  - Drug effect delayed [None]
  - Gastrointestinal haemorrhage [None]
  - Product formulation issue [None]

NARRATIVE: CASE EVENT DATE: 20140803
